FAERS Safety Report 20959317 (Version 2)
Quarter: 2022Q2

REPORT INFORMATION
  Report Type: Spontaneous
  Country: US (occurrence: US)
  Receive Date: 20220614
  Receipt Date: 20220628
  Transmission Date: 20220721
  Serious: Yes (Hospitalization, Other)
  Sender: FDA-Public Use
  Company Number: US-UPSHER-SMITH LABORATORIES, LLC-2022USL00389

PATIENT
  Age: 15 Year
  Sex: Female
  Weight: 92.517 kg

DRUGS (2)
  1. ISOTRETINOIN [Suspect]
     Active Substance: ISOTRETINOIN
     Indication: Acne
     Dosage: 10 MG, 1X/DAY
     Route: 048
     Dates: start: 202205, end: 20220525
  2. YAZ BIRTH CONTROL [Concomitant]

REACTIONS (2)
  - Depression [Not Recovered/Not Resolved]
  - Suicidal ideation [Unknown]

NARRATIVE: CASE EVENT DATE: 20220501
